FAERS Safety Report 9574929 (Version 2)
Quarter: 2013Q4

REPORT INFORMATION
  Report Type: Report from Study
  Country: CA (occurrence: CA)
  Receive Date: 20131001
  Receipt Date: 20131001
  Transmission Date: 20140711
  Serious: Yes (Other)
  Sender: FDA-Public Use
  Company Number: CA-ABBVIE-13P-028-1034481-00

PATIENT
  Sex: Male
  Weight: 74 kg

DRUGS (4)
  1. KALETRA TABLETS 200/50 [Suspect]
     Indication: HIV INFECTION
     Dosage: UNIT DOSE: 2 TABLETS OF 200/50 MG; LATEST DOSE: 08 JAN 2013
     Route: 048
     Dates: start: 20071001
  2. KALETRA TABLETS 200/50 [Suspect]
     Indication: ANTIRETROVIRAL THERAPY
  3. IRON [Suspect]
     Indication: BLOOD IRON DECREASED
  4. KIVEXA [Concomitant]
     Indication: HIV INFECTION
     Dosage: 600/300
     Route: 048

REACTIONS (5)
  - Inguinal hernia [Recovered/Resolved]
  - Constipation [Unknown]
  - Nephrolithiasis [Not Recovered/Not Resolved]
  - Aortic disorder [Not Recovered/Not Resolved]
  - Rash [Recovered/Resolved]
